FAERS Safety Report 17101264 (Version 2)
Quarter: 2019Q4

REPORT INFORMATION
  Report Type: Report from Study
  Country: US (occurrence: US)
  Receive Date: 20191202
  Receipt Date: 20191206
  Transmission Date: 20200122
  Serious: No
  Sender: FDA-Public Use
  Company Number: US-SA-2019SA331453

PATIENT
  Age: 48 Year
  Sex: Female

DRUGS (6)
  1. ESTROVEN [Concomitant]
     Active Substance: DIETARY SUPPLEMENT
     Indication: MENOPAUSE
     Dosage: UNK
     Dates: start: 201911
  2. TERIFLUNOMIDE. [Suspect]
     Active Substance: TERIFLUNOMIDE
     Indication: MULTIPLE SCLEROSIS
     Dosage: 14 MG, QD
     Route: 048
     Dates: start: 20180712
  3. TERIFLUNOMIDE. [Suspect]
     Active Substance: TERIFLUNOMIDE
     Dosage: 14 MG, QOD
     Route: 048
  4. GABAPENTIN. [Concomitant]
     Active Substance: GABAPENTIN
     Indication: PAIN IN EXTREMITY
     Dosage: UNK
     Dates: start: 2018
  5. GABAPENTIN. [Concomitant]
     Active Substance: GABAPENTIN
     Indication: BURNING SENSATION
  6. OXYBUTYNIN. [Concomitant]
     Active Substance: OXYBUTYNIN CHLORIDE
     Indication: BLADDER DISORDER
     Dosage: UNK
     Dates: start: 2018

REACTIONS (4)
  - Product use issue [Unknown]
  - Memory impairment [Not Recovered/Not Resolved]
  - Gait disturbance [Not Recovered/Not Resolved]
  - Condition aggravated [Not Recovered/Not Resolved]
